FAERS Safety Report 4714533-1 (Version None)
Quarter: 2005Q3

REPORT INFORMATION
  Report Type: 
  Country: None (occurrence: None)
  Receive Date: 20050714
  Receipt Date: 20050311
  Transmission Date: 20060218
  Serious: Yes (Hospitalization, Disabling)
  Sender: FDA-Public Use
  Company Number: US-MERCK-0503USA02611

PATIENT
  Age: 63 Year
  Sex: Female
  Weight: 77 kg

DRUGS (21)
  1. VIOXX [Suspect]
     Indication: BACK PAIN
     Route: 048
     Dates: start: 20010501, end: 20030901
  2. FAMVIR [Concomitant]
     Route: 065
  3. ACIPHEX [Concomitant]
     Route: 065
  4. GLUCOVANCE [Concomitant]
     Indication: DIABETES MELLITUS
     Route: 065
  5. XALATAN [Concomitant]
     Indication: OCULAR HYPERTENSION
     Route: 065
  6. CIPRO [Concomitant]
     Route: 065
  7. ZESTRIL [Concomitant]
     Route: 065
  8. NOVOLIN [Concomitant]
     Indication: DIABETES MELLITUS
     Route: 065
  9. MERIDIA [Concomitant]
     Route: 065
  10. LANTUS [Concomitant]
     Route: 065
  11. DIFLUCAN [Concomitant]
     Route: 065
  12. ZYRTEC [Concomitant]
     Route: 065
  13. AVELOX [Concomitant]
     Route: 065
  14. CLARINEX [Concomitant]
     Route: 065
  15. ALBUTEROL [Concomitant]
     Route: 055
  16. ZITHROMAX [Concomitant]
     Route: 065
  17. LESCOL [Concomitant]
     Route: 065
  18. COSOPT [Concomitant]
     Route: 065
  19. PREDNISONE [Concomitant]
     Route: 065
  20. ALPRAZOLAM [Concomitant]
     Route: 065
  21. DIAZIDE [Concomitant]
     Route: 065

REACTIONS (9)
  - ANXIETY [None]
  - ARTHROPATHY [None]
  - BLINDNESS [None]
  - CEREBROVASCULAR ACCIDENT [None]
  - CHEST PAIN [None]
  - GASTRITIS [None]
  - HYPERCHOLESTEROLAEMIA [None]
  - INSOMNIA [None]
  - RETINOPATHY [None]
